FAERS Safety Report 19221662 (Version 1)
Quarter: 2021Q2

REPORT INFORMATION
  Report Type: Report from Study
  Country: US (occurrence: US)
  Receive Date: 20210505
  Receipt Date: 20210505
  Transmission Date: 20210717
  Serious: Yes (Other)
  Sender: FDA-Public Use
  Company Number: US-GILEAD-2021-0526961

PATIENT
  Age: 39 Year
  Sex: Female

DRUGS (7)
  1. HYPERSAL [Concomitant]
     Active Substance: SODIUM CHLORIDE
  2. CLARITIN [Concomitant]
     Active Substance: LORATADINE
  3. AZTREONAM LYSINE [Suspect]
     Active Substance: AZTREONAM LYSINE
     Indication: BRONCHIECTASIS
     Dosage: 75 MG, TID, FOR 4 WEEKS, EVERY OTHER MONTH
     Route: 055
  4. BUDESONIDE. [Concomitant]
     Active Substance: BUDESONIDE
  5. SPIRIVA [Concomitant]
     Active Substance: TIOTROPIUM BROMIDE MONOHYDRATE
  6. ADVAIR HFA [Concomitant]
     Active Substance: FLUTICASONE PROPIONATE\SALMETEROL XINAFOATE
  7. ALBUTEROL SULFATE. [Concomitant]
     Active Substance: ALBUTEROL SULFATE

REACTIONS (2)
  - Off label use [Not Recovered/Not Resolved]
  - Caesarean section [Unknown]
